FAERS Safety Report 6239969-1 (Version None)
Quarter: 2009Q2

REPORT INFORMATION
  Report Type: 
  Country: None (occurrence: None)
  Receive Date: 20090623
  Receipt Date: 20090617
  Transmission Date: 20091009
  Serious: Yes (Other)
  Sender: FDA-Public Use
  Company Number: GB-BAYER-200811066BNE

PATIENT
  Age: 38 Year
  Sex: Male

DRUGS (4)
  1. SORAFENIB [Suspect]
     Indication: RENAL CANCER
     Dosage: 2 TABS QD
     Route: 048
     Dates: start: 20071024, end: 20080417
  2. SORAFENIB [Suspect]
     Dosage: 2 TABLETS BD
     Route: 048
     Dates: start: 20071024, end: 20080222
  3. SORAFENIB [Suspect]
     Dosage: BEFORE DOSE REDUCTION
     Dates: start: 20071025, end: 20080318
  4. SORAFENIB [Suspect]
     Dosage: DOSE REDUCED FROM DATE
     Dates: start: 20080318

REACTIONS (2)
  - CHEST X-RAY ABNORMAL [None]
  - PULMONARY TUBERCULOSIS [None]
